FAERS Safety Report 9009170 (Version 1)
Quarter: 2013Q1

REPORT INFORMATION
  Report Type: Spontaneous
  Country: US (occurrence: US)
  Receive Date: 20130111
  Receipt Date: 20130111
  Transmission Date: 20140127
  Serious: No
  Sender: FDA-Public Use
  Company Number: US-BAYER-2012-134658

PATIENT
  Age: 42 Year
  Sex: Female
  Weight: 56.69 kg

DRUGS (6)
  1. BETASERON [Suspect]
     Dosage: 0.3 MG, QOD
     Route: 058
  2. CYMBALTA [Concomitant]
  3. ENABLEX [Concomitant]
  4. BACLOFEN [Concomitant]
  5. VITAMIN D [Concomitant]
  6. AMPYRA [Concomitant]

REACTIONS (1)
  - Injection site bruising [Unknown]
